FAERS Safety Report 17848136 (Version 1)
Quarter: 2020Q2

REPORT INFORMATION
  Report Type: Report from Study
  Country: BR (occurrence: BR)
  Receive Date: 20200601
  Receipt Date: 20200601
  Transmission Date: 20200714
  Serious: Yes (Other)
  Sender: FDA-Public Use
  Company Number: BR-BRISTOL-MYERS SQUIBB COMPANY-BMS-2019-126661

PATIENT
  Age: 41 Year
  Sex: Female

DRUGS (3)
  1. ATAZANAVIR SULFATE. [Suspect]
     Active Substance: ATAZANAVIR SULFATE
     Indication: ANTIRETROVIRAL THERAPY
     Dosage: 1 DOSAGE FORM, QD
     Route: 048
  2. RITONAVIR. [Suspect]
     Active Substance: RITONAVIR
     Indication: ANTIRETROVIRAL THERAPY
     Dosage: 1 DOSAGE FORM, QD
     Route: 048
  3. LAMIVUDINE AND TENOFOVIR DISOPROXIL FUMARATE [Suspect]
     Active Substance: LAMIVUDINE\TENOFOVIR DISOPROXIL FUMARATE
     Indication: ANTIRETROVIRAL THERAPY
     Dosage: 1 DOSAGE FORM, QD
     Route: 048

REACTIONS (2)
  - Premature delivery [Unknown]
  - Maternal exposure during pregnancy [Recovered/Resolved]

NARRATIVE: CASE EVENT DATE: 20190805
